FAERS Safety Report 8560710-1 (Version None)
Quarter: 2012Q3

REPORT INFORMATION
  Report Type: 
  Country: None (occurrence: None)
  Receive Date: 20120802
  Receipt Date: 20120730
  Transmission Date: 20120928
  Serious: Yes (Disabling, Other)
  Sender: FDA-Public Use
  Company Number: PHFR2012GB004252

PATIENT
  Age: 76 Year
  Sex: Female
  Weight: 81 kg

DRUGS (7)
  1. FUROSEMIDE [Concomitant]
     Indication: HYPERTENSION
     Dosage: 20 MG
     Route: 048
  2. ALISKIREN [Suspect]
     Indication: HYPERTENSION
     Dosage: 300 MG
     Route: 048
     Dates: start: 20100924, end: 20120612
  3. SYMBICORT [Concomitant]
     Indication: CHRONIC OBSTRUCTIVE PULMONARY DISEASE
  4. CORACTEN [Concomitant]
     Indication: HYPERTENSION
     Dosage: 30 MG
     Route: 048
  5. TIOTROPIUM [Concomitant]
     Indication: CHRONIC OBSTRUCTIVE PULMONARY DISEASE
  6. AMITRIPTLINE HYDROCHLORIDE TAB [Concomitant]
     Indication: RESTLESS LEGS SYNDROME
     Dosage: 20 MG
     Route: 048
  7. OMEPRAZOLE [Concomitant]
     Indication: GASTROOESOPHAGEAL REFLUX DISEASE
     Dosage: 20 MG
     Route: 048

REACTIONS (3)
  - ABDOMINAL PAIN [None]
  - FAECAL INCONTINENCE [None]
  - DIARRHOEA [None]
